FAERS Safety Report 9216783 (Version 1)
Quarter: 2013Q2

REPORT INFORMATION
  Report Type: Spontaneous
  Country: US (occurrence: US)
  Receive Date: 20130408
  Receipt Date: 20130408
  Transmission Date: 20140414
  Serious: No
  Sender: FDA-Public Use
  Company Number: US-PFIZER INC-2013108811

PATIENT
  Sex: Female

DRUGS (4)
  1. ZOLOFT [Suspect]
     Indication: ANXIETY
     Dosage: 6.25 MG, UNK
     Dates: start: 20130131, end: 2013
  2. ZOLOFT [Suspect]
     Dosage: 37.5 MG, UNK
     Dates: start: 2013, end: 2013
  3. ZOLOFT [Suspect]
     Dosage: 50 MG, UNK
     Dates: start: 2013, end: 2013
  4. ZOLOFT [Suspect]
     Dosage: 87.5 MG, UNK
     Dates: start: 2013

REACTIONS (5)
  - Anxiety [Not Recovered/Not Resolved]
  - Weight decreased [Not Recovered/Not Resolved]
  - Decreased appetite [Not Recovered/Not Resolved]
  - Abdominal discomfort [Not Recovered/Not Resolved]
  - Nausea [Not Recovered/Not Resolved]
